FAERS Safety Report 9654441 (Version 1)
Quarter: 2013Q4

REPORT INFORMATION
  Report Type: Spontaneous
  Country: BR (occurrence: BR)
  Receive Date: 20131029
  Receipt Date: 20131029
  Transmission Date: 20140711
  Serious: Yes (Hospitalization, Other)
  Sender: FDA-Public Use
  Company Number: PHHY2013BR122097

PATIENT
  Age: 85 Year
  Sex: Female

DRUGS (2)
  1. MIACALCIC [Suspect]
     Indication: SPINAL FRACTURE
     Dosage: 1 DF, Q72H
     Route: 058
  2. MIACALCIC [Suspect]
     Indication: OSTEOPOROSIS

REACTIONS (4)
  - Spinal fracture [Not Recovered/Not Resolved]
  - Spinal pain [Not Recovered/Not Resolved]
  - Arthralgia [Not Recovered/Not Resolved]
  - Dysstasia [Not Recovered/Not Resolved]
